FAERS Safety Report 16525027 (Version 1)
Quarter: 2019Q3

REPORT INFORMATION
  Report Type: Report from Study
  Country: US (occurrence: US)
  Receive Date: 20190703
  Receipt Date: 20190703
  Transmission Date: 20191004
  Serious: Yes (Other)
  Sender: FDA-Public Use
  Company Number: US-TEVA-2019-US-1070389

PATIENT
  Age: 3 Month
  Sex: Female

DRUGS (9)
  1. PYRAZINAMIDE. [Suspect]
     Active Substance: PYRAZINAMIDE
     Indication: TUBERCULOSIS
     Dosage: THE INTENSIVE PHASE OF THE TREATMENT
     Route: 065
  2. ETHAMBUTOL [Suspect]
     Active Substance: ETHAMBUTOL HYDROCHLORIDE
     Dosage: THE CONTINUOUS PHASE OF THE TREATMENT
     Route: 065
  3. OFLOXACIN. [Suspect]
     Active Substance: OFLOXACIN
     Indication: TUBERCULOSIS
     Dosage: THE INTENSIVE PHASE OF THE TREATMENT
     Route: 065
  4. ETHAMBUTOL [Suspect]
     Active Substance: ETHAMBUTOL HYDROCHLORIDE
     Indication: TUBERCULOSIS
     Dosage: THE INTENSIVE PHASE OF THE TREATMENT
     Route: 065
  5. PYRAZINAMIDE. [Suspect]
     Active Substance: PYRAZINAMIDE
     Dosage: THE CONTINUOUS PHASE OF THE TREATMENT
     Route: 065
  6. PROTIONAMIDE [Suspect]
     Active Substance: PROTIONAMIDE
     Dosage: THE CONTINUOUS PHASE OF THE TREATMENT
     Route: 065
  7. PROTIONAMIDE [Suspect]
     Active Substance: PROTIONAMIDE
     Indication: TUBERCULOSIS
     Dosage: THE INTENSIVE PHASE OF THE TREATMENT
     Route: 065
  8. AMINOSALICYLIC ACID [Suspect]
     Active Substance: AMINOSALICYLIC ACID
     Indication: TUBERCULOSIS
     Dosage: THE INTENSIVE PHASE OF THE TREATMENT
     Route: 065
  9. AMINOSALICYLIC ACID [Suspect]
     Active Substance: AMINOSALICYLIC ACID
     Dosage: THE CONTINUOUS PHASE OF THE TREATMENT
     Route: 065

REACTIONS (1)
  - Hepatotoxicity [Recovered/Resolved]
